FAERS Safety Report 7228077-9 (Version None)
Quarter: 2011Q1

REPORT INFORMATION
  Report Type: 
  Country: None (occurrence: None)
  Receive Date: 20110114
  Receipt Date: 20101123
  Transmission Date: 20110831
  Serious: Yes (Other)
  Sender: FDA-Public Use
  Company Number: US-PURDUE-USA-2010-0056227

PATIENT
  Sex: Male

DRUGS (1)
  1. OXYCONTIN [Suspect]
     Indication: BACK PAIN
     Dosage: UNK
     Dates: start: 19990101, end: 20030101

REACTIONS (3)
  - OSTEOMYELITIS [None]
  - DEPRESSION [None]
  - SUICIDE ATTEMPT [None]
